FAERS Safety Report 8318207-X (Version None)
Quarter: 2012Q2

REPORT INFORMATION
  Report Type: 
  Country: None (occurrence: None)
  Receive Date: 20120427
  Receipt Date: 20120418
  Transmission Date: 20120825
  Serious: Yes (Other)
  Sender: FDA-Public Use
  Company Number: JP-ROCHE-1061940

PATIENT
  Age: 1 Year
  Sex: Female

DRUGS (2)
  1. ACTEMRA [Suspect]
     Indication: TAKAYASU'S ARTERITIS
     Route: 041
  2. PREDNISOLONE [Concomitant]
     Indication: TAKAYASU'S ARTERITIS
     Route: 048

REACTIONS (1)
  - ACUTE FEBRILE NEUTROPHILIC DERMATOSIS [None]
